FAERS Safety Report 6453624-4 (Version None)
Quarter: 2009Q4

REPORT INFORMATION
  Report Type: 
  Country: None (occurrence: None)
  Receive Date: 20091124
  Receipt Date: 20091110
  Transmission Date: 20100525
  Serious: Yes (Other)
  Sender: FDA-Public Use
  Company Number: PHHY2009FR50579

PATIENT
  Age: 69 Year
  Sex: Male

DRUGS (3)
  1. VOLTAREN [Suspect]
     Dosage: 75 MG, UNK
     Route: 048
  2. VOLTAREN [Suspect]
  3. DOLIPRANE [Concomitant]

REACTIONS (3)
  - DYSPHAGIA [None]
  - GINGIVAL SWELLING [None]
  - SWOLLEN TONGUE [None]
